FAERS Safety Report 25761827 (Version 3)
Quarter: 2025Q4

REPORT INFORMATION
  Report Type: Spontaneous
  Country: US (occurrence: US)
  Receive Date: 20250904
  Receipt Date: 20251104
  Transmission Date: 20260118
  Serious: No
  Sender: PFIZER
  Company Number: US-PFIZER INC-PV202500106379

PATIENT
  Sex: Female

DRUGS (8)
  1. DOCETAXEL [Suspect]
     Active Substance: DOCETAXEL
     Indication: Triple positive breast cancer
     Dosage: 167 MG, SINGLE (EVERY 3 WEEKS, CYCLE 1 OF 6)
     Dates: start: 20181018, end: 20181018
  2. DOCETAXEL [Suspect]
     Active Substance: DOCETAXEL
     Dosage: 147 MG, SINGLE (EVERY 3 WEEKS, CYCLE 2 OF 6)
     Dates: start: 20181108, end: 20181108
  3. DOCETAXEL [Suspect]
     Active Substance: DOCETAXEL
     Dosage: 147 MG, SINGLE (EVERY 3 WEEKS, CYCLE 3 OF 6)
     Dates: start: 20181129, end: 20181129
  4. DOCETAXEL [Suspect]
     Active Substance: DOCETAXEL
     Dosage: 147 MG, SINGLE (EVERY 3 WEEKS, CYCLE 4 OF 6)
     Dates: start: 20181220, end: 20181220
  5. DOCETAXEL [Suspect]
     Active Substance: DOCETAXEL
     Dosage: 147 MG, SINGLE (EVERY 3 WEEKS, CYCLE 5 OF 6)
     Dates: start: 20190110, end: 20190110
  6. DOCETAXEL [Suspect]
     Active Substance: DOCETAXEL
     Dosage: 147 MG, SINGLE (EVERY 3 WEEKS, CYCLE 6 OF 06)
     Dates: start: 20190131, end: 20190131
  7. HERCEPTIN [Concomitant]
     Active Substance: TRASTUZUMAB
     Indication: Chemotherapy
     Dosage: UNK
  8. PERJETA [Concomitant]
     Active Substance: PERTUZUMAB
     Indication: Chemotherapy
     Dosage: UNK

REACTIONS (2)
  - Lacrimal structure injury [Unknown]
  - Lacrimation increased [Not Recovered/Not Resolved]
